FAERS Safety Report 10182953 (Version 1)
Quarter: 2014Q2

REPORT INFORMATION
  Report Type: Spontaneous
  Country: US (occurrence: US)
  Receive Date: 20140520
  Receipt Date: 20140520
  Transmission Date: 20141212
  Serious: Yes (Other)
  Sender: FDA-Public Use
  Company Number: US-PFIZER INC-2014136291

PATIENT
  Age: 31 Year
  Sex: Female
  Weight: 117.91 kg

DRUGS (3)
  1. PRISTIQ [Suspect]
     Indication: ANTIDEPRESSANT THERAPY
     Dosage: 50 MG, DAILY
     Dates: start: 2010
  2. PRISTIQ [Suspect]
     Indication: ANXIETY
     Dosage: 100 MG, DAILY
  3. LOESTRIN [Concomitant]
     Indication: CONTRACEPTION
     Dosage: UNK

REACTIONS (1)
  - Obesity [Unknown]
